FAERS Safety Report 10022571 (Version 1)
Quarter: 2014Q1

REPORT INFORMATION
  Report Type: Spontaneous
  Country: US (occurrence: US)
  Receive Date: 20140319
  Receipt Date: 20140319
  Transmission Date: 20141002
  Serious: Yes (Other)
  Sender: FDA-Public Use
  Company Number: US-ELI_LILLY_AND_COMPANY-US201403003011

PATIENT
  Sex: Male

DRUGS (1)
  1. STRATTERA [Suspect]
     Indication: SLEEP APNOEA SYNDROME
     Dosage: 40 MG, QD
     Route: 065
     Dates: start: 2009

REACTIONS (2)
  - Parkinson^s disease [Not Recovered/Not Resolved]
  - Off label use [Unknown]
